FAERS Safety Report 7688471-9 (Version None)
Quarter: 2011Q3

REPORT INFORMATION
  Report Type: 
  Country: None (occurrence: None)
  Receive Date: 20110817
  Receipt Date: 20110808
  Transmission Date: 20111222
  Serious: Yes (Other)
  Sender: FDA-Public Use
  Company Number: CA-JNJFOC-20110805298

PATIENT
  Sex: Female
  Weight: 61 kg

DRUGS (1)
  1. REMICADE [Suspect]
     Indication: CROHN'S DISEASE
     Dosage: INFLLIXIMAB LOADING DOSE
     Route: 042
     Dates: start: 20110729

REACTIONS (4)
  - FATIGUE [None]
  - SYNCOPE [None]
  - CHEST DISCOMFORT [None]
  - CARDIAC FLUTTER [None]
